FAERS Safety Report 7082804-2 (Version None)
Quarter: 2010Q4

REPORT INFORMATION
  Report Type: 
  Country: None (occurrence: None)
  Receive Date: 20101026
  Receipt Date: 20101020
  Transmission Date: 20110411
  Serious: Yes (Other)
  Sender: FDA-Public Use
  Company Number: 2010SP055745

PATIENT
  Age: 35 Year
  Sex: Male

DRUGS (1)
  1. DEXAMETHASONE SODIUM PHOSPHATE [Suspect]
     Indication: PRODUCT USED FOR UNKNOWN INDICATION
     Dosage: ; IV
     Route: 042

REACTIONS (8)
  - DRUG INEFFECTIVE [None]
  - EXOPHTHALMOS [None]
  - EYE PAIN [None]
  - PUPILLARY DISORDER [None]
  - RETINAL VASCULAR DISORDER [None]
  - SCLERITIS [None]
  - VISION BLURRED [None]
  - WEGENER'S GRANULOMATOSIS [None]
